FAERS Safety Report 13122087 (Version 1)
Quarter: 2017Q1

REPORT INFORMATION
  Report Type: Report from Study
  Country: None (occurrence: BR)
  Receive Date: 20170117
  Receipt Date: 20170117
  Transmission Date: 20170428
  Serious: Yes (Disabling, Other)
  Sender: FDA-Public Use
  Company Number: BR-ABBVIE-17K-020-1834618-00

PATIENT
  Age: 54 Year
  Sex: Female
  Weight: 69 kg

DRUGS (3)
  1. HUMIRA [Suspect]
     Active Substance: ADALIMUMAB
     Indication: PSORIATIC ARTHROPATHY
     Route: 058
     Dates: start: 20160824
  2. BESEROL [Concomitant]
     Indication: PAIN
     Dosage: 1 OR 4 TABLETS, DAILY
     Route: 048
     Dates: start: 201611
  3. DIPYRONE [Concomitant]
     Active Substance: DIPYRONE
     Indication: PAIN
     Route: 048
     Dates: start: 201611

REACTIONS (11)
  - Mobility decreased [Unknown]
  - Activities of daily living impaired [Unknown]
  - Irritability [Recovering/Resolving]
  - Musculoskeletal pain [Not Recovered/Not Resolved]
  - Pain in extremity [Recovering/Resolving]
  - Insomnia [Unknown]
  - Arthralgia [Recovering/Resolving]
  - Confusional state [Recovering/Resolving]
  - Joint range of motion decreased [Not Recovered/Not Resolved]
  - Abasia [Unknown]
  - Limb mass [Recovering/Resolving]

NARRATIVE: CASE EVENT DATE: 2016
